FAERS Safety Report 26177906 (Version 1)
Quarter: 2025Q4

REPORT INFORMATION
  Report Type: Spontaneous
  Country: GB (occurrence: GB)
  Receive Date: 20251219
  Receipt Date: 20251219
  Transmission Date: 20260118
  Serious: Yes (Hospitalization)
  Sender: ACCORD
  Company Number: GB-Accord-518929

PATIENT
  Age: 66 Year
  Sex: Female

DRUGS (3)
  1. GEMCITABINE [Suspect]
     Active Substance: GEMCITABINE
     Indication: Pancreatic carcinoma metastatic
     Dosage: AN INTRAVENOUS INFUSION VIA A PERIPHERALLY
  2. GEMCITABINE [Suspect]
     Active Substance: GEMCITABINE
     Indication: Metastases to lymph nodes
     Dosage: AN INTRAVENOUS INFUSION VIA A PERIPHERALLY
  3. GEMCITABINE [Suspect]
     Active Substance: GEMCITABINE
     Indication: Metastases to lung
     Dosage: AN INTRAVENOUS INFUSION VIA A PERIPHERALLY

REACTIONS (2)
  - Atrial tachycardia [Recovered/Resolved]
  - Supraventricular tachycardia [Recovered/Resolved]
